FAERS Safety Report 6976320-3 (Version None)
Quarter: 2010Q3

REPORT INFORMATION
  Report Type: 
  Country: None (occurrence: None)
  Receive Date: 20100910
  Receipt Date: 20090420
  Transmission Date: 20110219
  Serious: No
  Sender: FDA-Public Use
  Company Number: US-WYE-H09043709

PATIENT
  Age: 19 Year
  Sex: Female
  Weight: 59.02 kg

DRUGS (3)
  1. PRISTIQ [Suspect]
     Indication: ANXIETY
     Route: 048
     Dates: start: 20080101, end: 20090301
  2. PRISTIQ [Suspect]
     Indication: DEPRESSION
  3. CLONAZEPAM [Concomitant]

REACTIONS (3)
  - FEELING ABNORMAL [None]
  - FEMALE SEXUAL AROUSAL DISORDER [None]
  - HYPERSOMNIA [None]
